FAERS Safety Report 6860876-5 (Version None)
Quarter: 2010Q3

REPORT INFORMATION
  Report Type: 
  Country: None (occurrence: None)
  Receive Date: 20100720
  Receipt Date: 20100709
  Transmission Date: 20110219
  Serious: Yes (Hospitalization, Other)
  Sender: FDA-Public Use
  Company Number: SE-BRISTOL-MYERS SQUIBB COMPANY-15199177

PATIENT
  Age: 63 Year
  Sex: Male

DRUGS (9)
  1. GLUCOPHAGE [Suspect]
     Indication: TYPE 2 DIABETES MELLITUS
     Dosage: 1 DF = GM3
     Dates: end: 20100522
  2. ENALAPRIL MALEATE [Suspect]
     Indication: ESSENTIAL HYPERTENSION
     Dosage: 1DF=20MGD
     Dates: end: 20100522
  3. VICTOZA [Suspect]
     Indication: DIABETES MELLITUS
     Dates: start: 20100308, end: 20100522
  4. LIPITOR [Concomitant]
  5. ZOLPIDEM [Concomitant]
  6. DUROFERON [Concomitant]
  7. TROMBYL [Concomitant]
  8. BEZALIP RETARD [Concomitant]
  9. PLAVIX [Concomitant]
     Indication: ESSENTIAL HYPERTENSION
     Dosage: FILM COATED

REACTIONS (4)
  - HYPERKALAEMIA [None]
  - NAUSEA [None]
  - RENAL FAILURE ACUTE [None]
  - VOMITING [None]
